FAERS Safety Report 23302417 (Version 2)
Quarter: 2023Q4

REPORT INFORMATION
  Report Type: Report from Study
  Country: RU (occurrence: RU)
  Receive Date: 20231215
  Receipt Date: 20231222
  Transmission Date: 20240110
  Serious: Yes (Other)
  Sender: FDA-Public Use
  Company Number: RU-002147023-NVSC2023RU262020

PATIENT
  Age: 83 Year
  Sex: Female

DRUGS (5)
  1. TAFINLAR [Suspect]
     Active Substance: DABRAFENIB MESYLATE
     Indication: Malignant melanoma
     Dosage: 300 MG, QD
     Route: 048
     Dates: start: 20230320
  2. MEKINIST [Suspect]
     Active Substance: TRAMETINIB DIMETHYL SULFOXIDE
     Indication: Malignant melanoma
     Dosage: 2 MG, QD
     Route: 048
     Dates: start: 20230320
  3. METOPROLOL [Concomitant]
     Active Substance: METOPROLOL
     Indication: Hypertension
     Dosage: 50-100 MG, (A DAY)
     Route: 065
  4. INDAP [Concomitant]
     Indication: Hypertension
     Dosage: 2.5 MG, A DAY
     Route: 065
  5. CARDIOMAGNYL [Concomitant]
     Active Substance: ASPIRIN\MAGNESIUM HYDROXIDE
     Indication: Hypertension
     Dosage: UNK, QD
     Route: 065

REACTIONS (10)
  - Atrial fibrillation [Recovered/Resolved]
  - Pulmonary fibrosis [Unknown]
  - Hyperthermia [Unknown]
  - Renal cyst [Unknown]
  - Mucosal hypertrophy [Unknown]
  - Bone hypertrophy [Unknown]
  - Lymphadenopathy [Unknown]
  - Hepatomegaly [Unknown]
  - Cholelithiasis [Unknown]
  - Pyrexia [Recovered/Resolved]

NARRATIVE: CASE EVENT DATE: 20230816
